FAERS Safety Report 21760310 (Version 1)
Quarter: 2022Q4

REPORT INFORMATION
  Report Type: Report from Study
  Country: US (occurrence: US)
  Receive Date: 20221221
  Receipt Date: 20221221
  Transmission Date: 20230113
  Serious: Yes (Other)
  Sender: FDA-Public Use
  Company Number: US-ABBVIE-4244229

PATIENT
  Sex: Female

DRUGS (2)
  1. HUMIRA [Suspect]
     Active Substance: ADALIMUMAB
     Indication: Crohn^s disease
     Dosage: CITRATE FREE, FORM STRENGTH: 40 MG
     Route: 058
     Dates: start: 20220328
  2. HUMIRA [Suspect]
     Active Substance: ADALIMUMAB
     Indication: Ankylosing spondylitis

REACTIONS (9)
  - Knee operation [Unknown]
  - Muscle rupture [Recovering/Resolving]
  - Rhinorrhoea [Unknown]
  - Upper-airway cough syndrome [Unknown]
  - Myalgia [Unknown]
  - Diabetes mellitus [Not Recovered/Not Resolved]
  - Staphylococcal infection [Unknown]
  - Sinus congestion [Not Recovered/Not Resolved]
  - Hypothyroidism [Not Recovered/Not Resolved]
